FAERS Safety Report 5317265-4 (Version None)
Quarter: 2007Q2

REPORT INFORMATION
  Report Type: 
  Country: None (occurrence: None)
  Receive Date: 20070504
  Receipt Date: 20070423
  Transmission Date: 20071010
  Serious: Yes (Death, Other)
  Sender: FDA-Public Use
  Company Number: NO-PFIZER INC-2007032845

PATIENT
  Sex: Male

DRUGS (5)
  1. LIPITOR [Suspect]
     Indication: MYOCARDIAL INFARCTION
  2. ALBYL-E [Concomitant]
     Indication: MYOCARDIAL ISCHAEMIA
  3. FUROSEMIDE [Concomitant]
     Indication: MYOCARDIAL ISCHAEMIA
  4. METOPROLOL SUCCINATE [Concomitant]
     Indication: MYOCARDIAL ISCHAEMIA
  5. ENALAPRIL [Concomitant]
     Indication: MYOCARDIAL ISCHAEMIA

REACTIONS (4)
  - ACUTE HEPATIC FAILURE [None]
  - DEATH [None]
  - RENAL FAILURE ACUTE [None]
  - RHABDOMYOLYSIS [None]
